FAERS Safety Report 7568009-7 (Version None)
Quarter: 2011Q2

REPORT INFORMATION
  Report Type: 
  Country: None (occurrence: None)
  Receive Date: 20110623
  Receipt Date: 20110609
  Transmission Date: 20111010
  Serious: Yes (Hospitalization, Other)
  Sender: FDA-Public Use
  Company Number: SE-CELGENEUS-150-20785-11040730

PATIENT
  Sex: Female

DRUGS (6)
  1. PAMIDRONAT TEVA [Concomitant]
     Route: 065
  2. DEXAMETHASONE [Suspect]
     Indication: MULTIPLE MYELOMA
     Route: 048
     Dates: start: 20110104, end: 20110105
  3. LAKTULOS APELSIN MEDA [Concomitant]
     Route: 065
  4. ASPIRIN [Suspect]
     Route: 065
  5. THALIDOMIDE [Suspect]
     Indication: MULTIPLE MYELOMA
     Dosage: 100 MILLIGRAM
     Route: 048
     Dates: start: 20110107
  6. CYCLOPHOSPHAMIDE [Suspect]
     Indication: MULTIPLE MYELOMA
     Route: 065
     Dates: start: 20110104, end: 20110104

REACTIONS (1)
  - RETINAL VEIN OCCLUSION [None]
